FAERS Safety Report 20375384 (Version 2)
Quarter: 2022Q4

REPORT INFORMATION
  Report Type: Spontaneous
  Country: ES (occurrence: ES)
  Receive Date: 20220125
  Receipt Date: 20221007
  Transmission Date: 20230113
  Serious: Yes (Life-Threatening, Hospitalization)
  Sender: FDA-Public Use
  Company Number: None

PATIENT
  Age: 60 Year
  Sex: Female

DRUGS (5)
  1. CAPECITABINE [Interacting]
     Active Substance: CAPECITABINE
     Indication: Colorectal cancer
     Dosage: 2 EVERY 12 HOURS,CAPECITABINE (1224A)
     Route: 048
     Dates: start: 20211214, end: 20211230
  2. BRIVUDINE [Interacting]
     Active Substance: BRIVUDINE
     Indication: Herpes zoster
     Dosage: BRIVUDINE (2453A)
     Route: 048
     Dates: start: 20211224, end: 20211225
  3. REPAGLINIDE [Concomitant]
     Active Substance: REPAGLINIDE
     Indication: Diabetes mellitus
     Dosage: 2 EVERY 8 HOURS,REPAGLINIDE ACCORD 1 MG TABLETS EFG, 90 TABLETS
     Route: 048
     Dates: start: 20201230
  4. DEPRAX [Concomitant]
     Indication: Insomnia
     Dosage: 1 EVERY 24H,DEPRAX 100 MG FILM-COATED TABLETS, 30 TABLETS
     Route: 048
     Dates: start: 20210615
  5. FAMOTIDINE [Concomitant]
     Active Substance: FAMOTIDINE
     Indication: Gastrooesophageal reflux disease
     Dosage: FAMOTIDINE ARISTO 20 MG TABLETS EFG, 20 TABLETS
     Route: 048
     Dates: start: 20211028

REACTIONS (5)
  - Pharyngeal inflammation [Recovered/Resolved]
  - Agranulocytosis [Recovered/Resolved]
  - Oesophagitis [Recovered/Resolved]
  - Vulvovaginal inflammation [Recovered/Resolved]
  - Drug interaction [Unknown]

NARRATIVE: CASE EVENT DATE: 20211229
